FAERS Safety Report 6816192-0 (Version None)
Quarter: 2010Q3

REPORT INFORMATION
  Report Type: 
  Country: None (occurrence: None)
  Receive Date: 20100705
  Receipt Date: 20100629
  Transmission Date: 20110219
  Serious: Yes (Death, Hospitalization)
  Sender: FDA-Public Use
  Company Number: DE-ELI_LILLY_AND_COMPANY-DE201006005666

PATIENT
  Sex: Male
  Weight: 68.7 kg

DRUGS (9)
  1. PEMETREXED [Suspect]
     Indication: NON-SMALL CELL LUNG CANCER
     Dosage: 900 MG, ONCE EVERY 3 WEEKS
     Route: 042
     Dates: start: 20100520
  2. OTHER PHARMA COMPANY INV DRUG [Suspect]
     Indication: NON-SMALL CELL LUNG CANCER
     Dosage: 800 MG, TWICE EVERY 3 WEEKS
     Route: 042
     Dates: start: 20100520
  3. CISPLATIN [Suspect]
     Indication: NON-SMALL CELL LUNG CANCER
     Dosage: 130 MG, ONCE EVERY 3 WEEKS
     Route: 042
     Dates: start: 20100520
  4. NEXIUM [Concomitant]
     Indication: PROPHYLAXIS
     Dosage: 40 MG, UNK
     Dates: start: 20100421
  5. FOLSAN [Concomitant]
     Dosage: 0.4 D/F, UNK
     Dates: start: 20100511
  6. VOLTAREN                                /SCH/ [Concomitant]
     Indication: PAIN
     Dosage: 75 MG, UNK
     Dates: start: 20100511
  7. ACC                                /00082801/ [Concomitant]
     Indication: COUGH
     Dosage: 600 D/F, UNK
     Dates: start: 20100511
  8. DECORTIN H [Concomitant]
     Indication: PROPHYLAXIS
     Dates: start: 20100424
  9. CYANOCOBALAMIN [Concomitant]
     Dates: start: 20100414

REACTIONS (23)
  - BLOOD CALCIUM DECREASED [None]
  - BLOOD CHLORIDE DECREASED [None]
  - BLOOD CHOLINESTERASE DECREASED [None]
  - BLOOD CREATINE PHOSPHOKINASE MB INCREASED [None]
  - BLOOD CREATININE INCREASED [None]
  - BLOOD LACTATE DEHYDROGENASE INCREASED [None]
  - BLOOD LACTIC ACID INCREASED [None]
  - BLOOD MAGNESIUM DECREASED [None]
  - BLOOD POTASSIUM DECREASED [None]
  - BLOOD SODIUM DECREASED [None]
  - BLOOD UREA INCREASED [None]
  - DEHYDRATION [None]
  - GENERAL PHYSICAL HEALTH DETERIORATION [None]
  - HAEMATOCRIT DECREASED [None]
  - HAEMOGLOBIN DECREASED [None]
  - INTESTINAL GANGRENE [None]
  - INTRA-ABDOMINAL HAEMORRHAGE [None]
  - PLATELET COUNT INCREASED [None]
  - POST PROCEDURAL HAEMORRHAGE [None]
  - PROTEIN TOTAL DECREASED [None]
  - RED BLOOD CELL COUNT DECREASED [None]
  - SPLENIC INFARCTION [None]
  - WHITE BLOOD CELL COUNT DECREASED [None]
